FAERS Safety Report 17030728 (Version 4)
Quarter: 2020Q4

REPORT INFORMATION
  Report Type: Spontaneous
  Country: IN (occurrence: IN)
  Receive Date: 20191114
  Receipt Date: 20201216
  Transmission Date: 20210113
  Serious: Yes (Other)
  Sender: FDA-Public Use
  Company Number: IN-PFIZER INC-2019489670

PATIENT
  Age: 35 Year
  Sex: Female

DRUGS (1)
  1. PALBACE [Suspect]
     Active Substance: PALBOCICLIB
     Indication: BREAST CANCER METASTATIC
     Dosage: 125 MG, 1X/DAY
     Route: 048
     Dates: start: 20191017

REACTIONS (9)
  - Mouth ulceration [Unknown]
  - Pain [Unknown]
  - Back pain [Unknown]
  - Fatigue [Unknown]
  - Stomatitis [Unknown]
  - Thrombosis [Unknown]
  - Cough [Unknown]
  - Toothache [Unknown]
  - Lip dry [Unknown]

NARRATIVE: CASE EVENT DATE: 201912
